FAERS Safety Report 19144113 (Version 1)
Quarter: 2021Q2

REPORT INFORMATION
  Report Type: Spontaneous
  Country: US (occurrence: US)
  Receive Date: 20210416
  Receipt Date: 20210416
  Transmission Date: 20210717
  Serious: Yes (Other)
  Sender: FDA-Public Use
  Company Number: US-NOVOPROD-801568

PATIENT
  Sex: Male

DRUGS (1)
  1. LEVEMIR [Suspect]
     Active Substance: INSULIN DETEMIR
     Indication: PRODUCT USED FOR UNKNOWN INDICATION
     Dosage: 40 IU, QD
     Route: 058
     Dates: start: 2012, end: 20210301

REACTIONS (16)
  - Dyskinesia [Not Recovered/Not Resolved]
  - Burning sensation [Recovered/Resolved]
  - Pain [Recovered/Resolved]
  - Insomnia [Recovered/Resolved]
  - Emotional distress [Recovered/Resolved]
  - Dysphagia [Recovered/Resolved]
  - Choking [Recovered/Resolved]
  - Headache [Recovered/Resolved]
  - Neuralgia [Recovered/Resolved]
  - Retching [Recovered/Resolved]
  - Shock [Recovered/Resolved]
  - Burning sensation [Not Recovered/Not Resolved]
  - Dysphemia [Recovered/Resolved]
  - Injection site pain [Recovered/Resolved]
  - Injection site pruritus [Recovered/Resolved]
  - Ligament sprain [Recovered/Resolved]

NARRATIVE: CASE EVENT DATE: 201810
